FAERS Safety Report 7878049-6 (Version None)
Quarter: 2011Q4

REPORT INFORMATION
  Report Type: 
  Country: None (occurrence: None)
  Receive Date: 20111101
  Receipt Date: 20111020
  Transmission Date: 20120403
  Serious: Yes (Hospitalization)
  Sender: FDA-Public Use
  Company Number: US-BIOGENIDEC-2011BI015081

PATIENT
  Age: 47 Year
  Sex: Female

DRUGS (9)
  1. BONIVA [Concomitant]
  2. BONIVA [Concomitant]
  3. TYSABRI [Suspect]
     Indication: MULTIPLE SCLEROSIS
     Route: 042
     Dates: start: 20080205
  4. ASPIRIN [Concomitant]
  5. BACLOFEN [Concomitant]
     Indication: MUSCLE SPASMS
  6. LEXAPRO [Concomitant]
  7. BUSPAR [Concomitant]
  8. CRESTOR [Concomitant]
  9. LYRICA [Concomitant]

REACTIONS (5)
  - CONVULSION [None]
  - MULTIPLE SCLEROSIS [None]
  - DEPRESSION [None]
  - HYPOAESTHESIA [None]
  - VISUAL ACUITY REDUCED [None]
